FAERS Safety Report 13181658 (Version 3)
Quarter: 2017Q1

REPORT INFORMATION
  Report Type: Report from Study
  Country: US (occurrence: US)
  Receive Date: 20170202
  Receipt Date: 20170213
  Transmission Date: 20170428
  Serious: Yes (Death)
  Sender: FDA-Public Use
  Company Number: US-EXELIXIS-CABO-17008132

PATIENT
  Sex: Female

DRUGS (4)
  1. BENADRYL [Concomitant]
     Active Substance: DIPHENHYDRAMINE HYDROCHLORIDE
  2. TYLENOL [Concomitant]
     Active Substance: ACETAMINOPHEN
  3. CABOMETYX [Suspect]
     Active Substance: CABOZANTINIB S-MALATE
     Indication: RENAL CANCER
     Dosage: 60 MG, QD
     Route: 048
     Dates: start: 20160929
  4. CORTISONE [Concomitant]
     Active Substance: CORTISONE\HYDROCORTISONE

REACTIONS (1)
  - Malignant neoplasm progression [Fatal]
